FAERS Safety Report 9458088 (Version 1)
Quarter: 2013Q3

REPORT INFORMATION
  Report Type: Spontaneous
  Country: US (occurrence: None)
  Receive Date: 20130812
  Receipt Date: 20130812
  Transmission Date: 20140515
  Serious: No
  Sender: FDA-Public Use
  Company Number: None

PATIENT
  Age: 59 Year
  Sex: Male

DRUGS (1)
  1. ENBREL 50MG AMGEN [Suspect]
     Dates: start: 201307

REACTIONS (2)
  - Anxiety [None]
  - Flushing [None]
